FAERS Safety Report 5018212-5 (Version None)
Quarter: 2006Q2

REPORT INFORMATION
  Report Type: 
  Country: None (occurrence: None)
  Receive Date: 20060530
  Receipt Date: 20060516
  Transmission Date: 20061013
  Serious: Yes (Other)
  Sender: FDA-Public Use
  Company Number: 2006065134

PATIENT
  Age: 84 Year
  Sex: Male

DRUGS (8)
  1. ZYVOX [Suspect]
     Indication: SEPSIS
     Dosage: 1200 MG, INTRAVENOUS
     Route: 042
     Dates: start: 20060510, end: 20060516
  2. VFEND [Concomitant]
  3. MEROPEN (MEROPENEM TRIHYDRATE) (MEROPENEM) [Concomitant]
  4. CIPROXAN (CIPROFLOXACIN) (CIPROFLOXACIN HYDROCHLORIDE) [Concomitant]
  5. LASIX [Concomitant]
  6. SOLDACTONE (POTASSIUM CANRENOATE) (POTASSIUM CANRENOATE) [Concomitant]
  7. NEOPHAGEN (SEE BLOCK 5) (GLYCYRRHIZINATE POTASSIUM) [Concomitant]
  8. 10% SODIUM CHLORIDE (SODIUM CHLORIDE) [Concomitant]

REACTIONS (3)
  - CONDITION AGGRAVATED [None]
  - DEPRESSED LEVEL OF CONSCIOUSNESS [None]
  - HYPONATRAEMIA [None]
